FAERS Safety Report 8423085-4 (Version None)
Quarter: 2012Q2

REPORT INFORMATION
  Report Type: 
  Country: None (occurrence: None)
  Receive Date: 20120323
  Receipt Date: 20111107
  Transmission Date: 20120825
  Serious: Yes (Disabling, Other)
  Sender: FDA-Public Use
  Company Number: 163-21880-11092937

PATIENT
  Age: 73 Year
  Sex: Female

DRUGS (5)
  1. ARANESP [Concomitant]
  2. VITAMIN D [Concomitant]
  3. REVLIMID [Suspect]
     Indication: MYELODYSPLASTIC SYNDROME
     Dosage: 10 MG, 1 IN 1 D, PO
     Route: 048
     Dates: start: 20110606, end: 20110826
  4. PREDNISONE TAB [Concomitant]
  5. IRON (IRON) [Concomitant]

REACTIONS (1)
  - PANCYTOPENIA [None]
